FAERS Safety Report 7315383-2 (Version None)
Quarter: 2011Q1

REPORT INFORMATION
  Report Type: 
  Country: None (occurrence: None)
  Receive Date: 20110218
  Receipt Date: 20110218
  Transmission Date: 20110831
  Serious: Yes (Hospitalization)
  Sender: FDA-Public Use
  Company Number: None

PATIENT
  Age: 56 Year
  Sex: Male
  Weight: 115.9 kg

DRUGS (15)
  1. COUMADIN [Suspect]
     Indication: ANTICOAGULANT THERAPY
     Dosage: 7.5 MG QHS PO CHRONIC
     Route: 048
  2. DULCOLAX [Concomitant]
  3. NITROGLYCERIN [Concomitant]
  4. ASA [Concomitant]
  5. MDM [Concomitant]
  6. LOVENOX [Suspect]
     Indication: ANTICOAGULANT THERAPY
     Dosage: 120MG Q12 SQ CHRONIC
     Route: 058
  7. AVALIDE [Concomitant]
  8. AMBIEN [Concomitant]
  9. PERCOCET [Concomitant]
  10. NORVASC [Concomitant]
  11. CRESTOR [Concomitant]
  12. LOPRESSOR [Concomitant]
  13. PERI-COLACE [Concomitant]
  14. ASENAPINE [Concomitant]
  15. M.V.I. [Concomitant]

REACTIONS (5)
  - OESOPHAGITIS [None]
  - CULTURE STOOL POSITIVE [None]
  - ANAEMIA [None]
  - HAEMORRHAGE [None]
  - HAEMATOMA [None]
